FAERS Safety Report 8718304 (Version 2)
Quarter: 2012Q4

REPORT INFORMATION
  Report Type: 
  Country: US (occurrence: US)
  Receive Date: 20120810
  Receipt Date: 20121003
  Transmission Date: 20130627
  Serious: Yes (Other)
  Sender: FDA-Public Use
  Company Number: US-ASTRAZENECA-2012SE44587

PATIENT
  Age: 88 Year
  Sex: Female

DRUGS (2)
  1. RHINOCORT AQUA NASAL SPRAY [Suspect]
     Route: 045
  2. NEXIUM [Suspect]
     Route: 048

REACTIONS (3)
  - Neoplasm malignant [Unknown]
  - Cerebrovascular accident [Unknown]
  - Hearing impaired [Unknown]
